FAERS Safety Report 7571149-X (Version None)
Quarter: 2011Q2

REPORT INFORMATION
  Report Type: 
  Country: None (occurrence: None)
  Receive Date: 20110620
  Receipt Date: 20110510
  Transmission Date: 20111010
  Serious: Yes (Congenital Anomaly)
  Sender: FDA-Public Use
  Company Number: BR-GDP-11410861

PATIENT
  Sex: Male
  Weight: 3.2 kg

DRUGS (4)
  1. ACTINE (COSMETICS) [Suspect]
     Indication: ACNE
     Dosage: (TRANSPLACENTAL)
     Route: 064
     Dates: start: 20090101, end: 20100903
  2. LYSALPHA (COSMETICS) [Suspect]
     Indication: ACNE
     Dosage: (TOPICAL)
     Route: 061
     Dates: start: 20100814, end: 20100903
  3. EPIDUO [Suspect]
     Dosage: (TRANSPLACENTAL)
     Route: 064
     Dates: start: 20100814, end: 20100903
  4. MINESOL (BUTYLMETHOXYDIBENZOYLTHANE;OCTINOXATE) [Suspect]
     Dosage: (TRANSPLACENTAL)
     Route: 064

REACTIONS (3)
  - MATERNAL DRUGS AFFECTING FOETUS [None]
  - CAESAREAN SECTION [None]
  - FALLOT'S TETRALOGY [None]
